FAERS Safety Report 7821990-0 (Version None)
Quarter: 2011Q4

REPORT INFORMATION
  Report Type: 
  Country: None (occurrence: None)
  Receive Date: 20111018
  Receipt Date: 20110117
  Transmission Date: 20120403
  Serious: No
  Sender: FDA-Public Use
  Company Number: US-ASTRAZENECA-2010SE60844

PATIENT
  Age: 51 Year
  Sex: Female
  Weight: 58.1 kg

DRUGS (8)
  1. SYMBICORT [Suspect]
     Indication: CHRONIC OBSTRUCTIVE PULMONARY DISEASE
     Dosage: 160/4.5 2 PUFFS BID
     Route: 055
     Dates: start: 20100701, end: 20101201
  2. SYMBICORT [Suspect]
     Indication: EMPHYSEMA
     Dosage: 160/4.5 2 PUFFS BID
     Route: 055
     Dates: start: 20100701, end: 20101201
  3. SYMBICORT [Suspect]
     Dosage: 160/4.5 2 PUFFS BID
     Route: 055
     Dates: start: 20101201
  4. SYMBICORT [Suspect]
     Dosage: 160/4.5 2 PUFFS BID
     Route: 055
     Dates: start: 20101201
  5. SPRIVA [Concomitant]
     Route: 055
     Dates: end: 20100701
  6. PROVENTIL [Concomitant]
     Indication: INHALATION THERAPY
     Route: 055
  7. SEREVENT [Concomitant]
     Route: 055
     Dates: start: 20101201, end: 20101201
  8. ADVAIR DISKUS 100/50 [Concomitant]
     Dates: end: 20100701

REACTIONS (4)
  - ADVERSE EVENT [None]
  - DYSPNOEA [None]
  - DRUG DOSE OMISSION [None]
  - INCORRECT DOSE ADMINISTERED [None]
